FAERS Safety Report 21609374 (Version 1)
Quarter: 2022Q4

REPORT INFORMATION
  Report Type: Spontaneous
  Country: US (occurrence: US)
  Receive Date: 20221117
  Receipt Date: 20221117
  Transmission Date: 20230113
  Serious: No
  Sender: FDA-Public Use
  Company Number: US-MYLANLABS-2022M1120373

PATIENT
  Sex: Female
  Weight: 83 kg

DRUGS (1)
  1. SEMGLEE (INSULIN GLARGINE-YFGN) [Suspect]
     Active Substance: INSULIN GLARGINE-YFGN
     Indication: Type 2 diabetes mellitus
     Dosage: 28 INTERNATIONAL UNIT, HS (28 UNITS ON A NIGHT)
     Route: 058

REACTIONS (3)
  - Product storage error [Unknown]
  - Device issue [Unknown]
  - Product quality issue [Unknown]
